FAERS Safety Report 5222724-9 (Version None)
Quarter: 2007Q1

REPORT INFORMATION
  Report Type: 
  Country: None (occurrence: None)
  Receive Date: 20070129
  Receipt Date: 20061115
  Transmission Date: 20070707
  Serious: No
  Sender: FDA-Public Use
  Company Number: US-GLAXOSMITHKLINE-A0627682A

PATIENT
  Age: 44 Year
  Sex: Female

DRUGS (3)
  1. COMBIVIR [Suspect]
     Indication: PROPHYLAXIS
     Dosage: 1TAB TWICE PER DAY
     Route: 048
     Dates: start: 20061107, end: 20061114
  2. SYNTHROID [Concomitant]
  3. NORTRIPTYLINE HCL [Concomitant]

REACTIONS (2)
  - LETHARGY [None]
  - NAUSEA [None]
